FAERS Safety Report 8430608-8 (Version None)
Quarter: 2012Q2

REPORT INFORMATION
  Report Type: 
  Country: None (occurrence: None)
  Receive Date: 20120612
  Receipt Date: 20120606
  Transmission Date: 20120825
  Serious: Yes (Hospitalization, Other)
  Sender: FDA-Public Use
  Company Number: FR-B.I. PHARMACEUTICALS,INC./RIDGEFIELD-2012-FF-00645FF

PATIENT
  Sex: Female
  Weight: 72 kg

DRUGS (4)
  1. PRADAXA [Suspect]
     Dosage: 220 MG
     Route: 048
  2. ATORVASTATIN [Concomitant]
     Dosage: 10 MG
  3. TENORMIN [Concomitant]
     Dosage: 25 MG
  4. MEDIATENSYL [Concomitant]
     Dosage: 120 MG

REACTIONS (2)
  - COLON CANCER [None]
  - RECTAL HAEMORRHAGE [None]
